FAERS Safety Report 9219870 (Version 1)
Quarter: 2013Q2

REPORT INFORMATION
  Report Type: Spontaneous
  Country: CN (occurrence: None)
  Receive Date: 20130405
  Receipt Date: 20130405
  Transmission Date: 20140414
  Serious: Yes (Death, Hospitalization, Other)
  Sender: FDA-Public Use
  Company Number: 2013P1004208

PATIENT
  Age: 13 Year
  Sex: Female

DRUGS (3)
  1. ISONIAZID [Suspect]
     Indication: MENINGITIS TUBERCULOUS
  2. PYRAZINAMIDE [Suspect]
     Indication: MENINGITIS TUBERCULOUS
  3. RIFAMPICIN [Suspect]
     Indication: MENINGITIS TUBERCULOUS

REACTIONS (5)
  - Apnoea [None]
  - Cardiac arrest [None]
  - Heart rate decreased [None]
  - Respiratory rate increased [None]
  - Cyanosis [None]
